FAERS Safety Report 14017088 (Version 1)
Quarter: 2017Q3

REPORT INFORMATION
  Report Type: Spontaneous
  Country: IT (occurrence: IT)
  Receive Date: 20170927
  Receipt Date: 20170927
  Transmission Date: 20171128
  Serious: Yes (Hospitalization)
  Sender: FDA-Public Use
  Company Number: IT-BAYER-2017-181398

PATIENT
  Age: 70 Year
  Sex: Female

DRUGS (6)
  1. CALCIUM [Concomitant]
     Active Substance: CALCIUM
  2. CICLOSPORIN [Concomitant]
     Active Substance: CYCLOSPORINE
  3. CATAPRESAN [Concomitant]
     Active Substance: CLONIDINE
  4. CARDIOASPIRIN 100 MG [Suspect]
     Active Substance: ASPIRIN
     Dosage: 100 MG, QD
     Route: 048
     Dates: start: 20160101, end: 20160503
  5. IRON [Concomitant]
     Active Substance: IRON
  6. ZYLORIC [Concomitant]
     Active Substance: ALLOPURINOL

REACTIONS (4)
  - Gaze palsy [Unknown]
  - Haemorrhagic stroke [Unknown]
  - Motor dysfunction [Unknown]
  - Aphasia [Unknown]

NARRATIVE: CASE EVENT DATE: 20160503
